FAERS Safety Report 4435174-X (Version None)
Quarter: 2004Q3

REPORT INFORMATION
  Report Type: 
  Country: None (occurrence: None)
  Receive Date: 20040826
  Receipt Date: 20040810
  Transmission Date: 20050211
  Serious: Yes (Hospitalization)
  Sender: FDA-Public Use
  Company Number: DSA_24811_2004

PATIENT
  Age: 34 Year
  Sex: Male

DRUGS (1)
  1. TAVOR [Suspect]
     Dosage: 1 TAB ONCE IA
     Dates: start: 20040801, end: 20040801

REACTIONS (4)
  - BLOOD CREATINE PHOSPHOKINASE INCREASED [None]
  - CYANOSIS [None]
  - MEDICATION ERROR [None]
  - PAIN IN EXTREMITY [None]
